FAERS Safety Report 16934027 (Version 1)
Quarter: 2019Q4

REPORT INFORMATION
  Report Type: Spontaneous
  Country: DE (occurrence: DE)
  Receive Date: 20191018
  Receipt Date: 20191018
  Transmission Date: 20200122
  Serious: Yes (Other)
  Sender: FDA-Public Use
  Company Number: DE-TORRENT-00015740

PATIENT
  Sex: Male
  Weight: 3 kg

DRUGS (1)
  1. LAMOTRIGINE. [Suspect]
     Active Substance: LAMOTRIGINE
     Indication: EPILEPSY
     Dosage: 400 [MG/D (200-0-200) ]
     Route: 064

REACTIONS (6)
  - Foetal exposure during pregnancy [Unknown]
  - Apnoea [Unknown]
  - Patent ductus arteriosus [Recovering/Resolving]
  - Atrial septal defect [Unknown]
  - Apparent life threatening event [Recovered/Resolved]
  - Exposure via breast milk [Unknown]
